FAERS Safety Report 25116811 (Version 1)
Quarter: 2025Q1

REPORT INFORMATION
  Report Type: Report from Study
  Country: BR (occurrence: BR)
  Receive Date: 20250325
  Receipt Date: 20250325
  Transmission Date: 20250408
  Serious: No
  Sender: JOHNSON AND JOHNSON
  Company Number: BR-JNJFOC-20250308601

PATIENT
  Age: 67 Year
  Sex: Female
  Weight: 67 kg

DRUGS (1)
  1. TREMFYA [Suspect]
     Active Substance: GUSELKUMAB
     Indication: Psoriasis
     Route: 058

REACTIONS (3)
  - Device deployment issue [Unknown]
  - Underdose [Unknown]
  - Accidental exposure to product [Unknown]
